FAERS Safety Report 25724844 (Version 1)
Quarter: 2025Q3

REPORT INFORMATION
  Report Type: Report from Study
  Country: US (occurrence: US)
  Receive Date: 20250826
  Receipt Date: 20250826
  Transmission Date: 20251021
  Serious: No
  Sender: SANDOZ
  Company Number: US-SANDOZ-SDZ2025US061451

PATIENT
  Sex: Male

DRUGS (2)
  1. OMNITROPE [Suspect]
     Active Substance: SOMATROPIN
     Indication: Product used for unknown indication
     Dosage: 1.1 MG, QD (OMNITROPE PEN 10 1.1MG S/C DAILY)
     Route: 058
  2. OMNITROPE [Suspect]
     Active Substance: SOMATROPIN
     Indication: Product used for unknown indication
     Dosage: 1.1 MG, QD (OMNITROPE PEN 10 1.1MG S/C DAILY)
     Route: 058

REACTIONS (3)
  - Device use issue [Unknown]
  - Circumstance or information capable of leading to medication error [Unknown]
  - Device defective [Unknown]
